FAERS Safety Report 25263506 (Version 1)
Quarter: 2025Q2

REPORT INFORMATION
  Report Type: Spontaneous
  Country: US (occurrence: None)
  Receive Date: 20250501
  Receipt Date: 20250501
  Transmission Date: 20250717
  Serious: No
  Sender: FDA-CTU
  Company Number: None

PATIENT
  Sex: Female
  Weight: 75.6 kg

DRUGS (10)
  1. FLUTICASONE PROPIONATE [Suspect]
     Active Substance: FLUTICASONE PROPIONATE
     Dosage: OTHER STRENGTH : 50 MCG;?OTHER QUANTITY : 2 SPRAY(S);?FREQUENCY : DAILY;?OTHER ROUTE : SPRAY INTO NOSTRIL;?
     Route: 050
     Dates: start: 20241219, end: 20250309
  2. HYDROCHLOROTHIAZIDE [Concomitant]
     Active Substance: HYDROCHLOROTHIAZIDE
  3. Levithyroxine [Concomitant]
  4. COZAAR [Concomitant]
     Active Substance: LOSARTAN POTASSIUM
  5. PRAVASTATIN [Concomitant]
     Active Substance: PRAVASTATIN
  6. XARELTO [Concomitant]
     Active Substance: RIVAROXABAN
  7. XANAX [Concomitant]
     Active Substance: ALPRAZOLAM
  8. OMEPRAZOLE [Concomitant]
     Active Substance: OMEPRAZOLE
  9. VITAMIN D3 [Concomitant]
     Active Substance: CHOLECALCIFEROL
  10. B12 [Concomitant]

REACTIONS (9)
  - Weight increased [None]
  - Sleep disorder [None]
  - Muscular weakness [None]
  - Epistaxis [None]
  - Arthralgia [None]
  - Pain in extremity [None]
  - Fatigue [None]
  - Malaise [None]
  - Alanine aminotransferase increased [None]
